FAERS Safety Report 10454991 (Version 1)
Quarter: 2014Q3

REPORT INFORMATION
  Report Type: Report from Study
  Country: US (occurrence: US)
  Receive Date: 20140915
  Receipt Date: 20140915
  Transmission Date: 20150326
  Serious: Yes (Other)
  Sender: FDA-Public Use
  Company Number: US-ALEXION PHARMACEUTICALS INC-A200800754

PATIENT
  Sex: Male

DRUGS (1)
  1. SOLIRIS [Suspect]
     Active Substance: ECULIZUMAB

REACTIONS (17)
  - Back pain [Unknown]
  - Dyspnoea [Unknown]
  - Quality of life decreased [Unknown]
  - Transfusion [Unknown]
  - Withdrawal syndrome [Unknown]
  - Dysphagia [Unknown]
  - Asthma [Unknown]
  - Haemoglobinuria [Unknown]
  - Pain [Unknown]
  - Gastrointestinal sounds abnormal [Unknown]
  - Somnolence [Unknown]
  - Device malfunction [Unknown]
  - Thrombosis [Unknown]
  - Obesity [Unknown]
  - Fatigue [Unknown]
  - Hiatus hernia [Unknown]
  - Haemolysis [Unknown]
